FAERS Safety Report 10025236 (Version 1)
Quarter: 2014Q1

REPORT INFORMATION
  Report Type: Spontaneous
  Country: US (occurrence: None)
  Receive Date: 20140304
  Receipt Date: 20140304
  Transmission Date: 20141002
  Serious: Yes (Hospitalization, Other)
  Sender: FDA-Public Use
  Company Number: RB-50886-2013

PATIENT
  Age: 18 Month
  Sex: Female

DRUGS (1)
  1. SUBOXONE [Suspect]
     Indication: DRUG DEPENDENCE
     Dosage: (TOOK A PIECE OF THE TABLE (LESS THAN 1/4) ORAL)
     Route: 048
     Dates: start: 201212, end: 201212

REACTIONS (2)
  - Accidental exposure to product by child [None]
  - No adverse event [None]
